FAERS Safety Report 17693621 (Version 1)
Quarter: 2020Q2

REPORT INFORMATION
  Report Type: Spontaneous
  Country: US (occurrence: US)
  Receive Date: 20200420
  Receipt Date: 20200420
  Transmission Date: 20200714
  Serious: Yes (Hospitalization)
  Sender: FDA-Public Use
  Company Number: None

PATIENT
  Age: 54 Year
  Sex: Male

DRUGS (10)
  1. SENNA [Concomitant]
     Active Substance: SENNA LEAF\SENNOSIDES\SENNOSIDES A AND B
  2. HUMALOG [Concomitant]
     Active Substance: INSULIN LISPRO
  3. ATORVASTATIN [Concomitant]
     Active Substance: ATORVASTATIN
  4. HYDROMORPHINE [Concomitant]
     Active Substance: HYDROMORPHONE
  5. PLAVIX [Concomitant]
     Active Substance: CLOPIDOGREL BISULFATE
  6. IRON [Concomitant]
     Active Substance: IRON
  7. ALECENSA [Suspect]
     Active Substance: ALECTINIB HYDROCHLORIDE
     Indication: LUNG NEOPLASM MALIGNANT
     Route: 048
     Dates: start: 20170707
  8. OXCARBAZEPINE. [Concomitant]
     Active Substance: OXCARBAZEPINE
  9. NITROSTAT [Concomitant]
     Active Substance: NITROGLYCERIN
  10. LANTUS [Concomitant]
     Active Substance: INSULIN GLARGINE

REACTIONS (1)
  - Pulmonary oedema [None]

NARRATIVE: CASE EVENT DATE: 202003
